FAERS Safety Report 10357844 (Version 2)
Quarter: 2014Q3

REPORT INFORMATION
  Report Type: Spontaneous
  Country: US (occurrence: US)
  Receive Date: 20140801
  Receipt Date: 20140801
  Transmission Date: 20150326
  Serious: Yes (Death)
  Sender: FDA-Public Use
  Company Number: US-GLAXOSMITHKLINE-A0871775A

PATIENT
  Sex: Male

DRUGS (1)
  1. AVANDIA [Suspect]
     Active Substance: ROSIGLITAZONE MALEATE
     Indication: DIABETES MELLITUS
     Dosage: 4MG PER DAY
     Dates: start: 19991129, end: 20071225

REACTIONS (5)
  - Diabetes mellitus [Fatal]
  - Myocardial infarction [Unknown]
  - Cardio-respiratory arrest [Fatal]
  - Hypertension [Fatal]
  - Cardiac arrest [Fatal]
